FAERS Safety Report 6663367-X (Version None)
Quarter: 2010Q2

REPORT INFORMATION
  Report Type: 
  Country: None (occurrence: None)
  Receive Date: 20100401
  Receipt Date: 20100319
  Transmission Date: 20101027
  Serious: Yes (Hospitalization)
  Sender: FDA-Public Use
  Company Number: HR-BAYER-200819615GPV

PATIENT
  Age: 64 Year
  Sex: Male
  Weight: 90 kg

DRUGS (10)
  1. FLUDARA [Suspect]
     Indication: CHRONIC LYMPHOCYTIC LEUKAEMIA
     Route: 042
     Dates: start: 20080219, end: 20080223
  2. FLUDARA [Suspect]
     Route: 042
     Dates: start: 20080414, end: 20080418
  3. FLUDARA [Suspect]
     Route: 042
     Dates: start: 20080317, end: 20080321
  4. FLUDARA [Suspect]
     Route: 042
     Dates: start: 20080520, end: 20080524
  5. TAZOCIN [Concomitant]
     Indication: PYREXIA
     Dosage: 4X4.5 G
     Route: 042
     Dates: start: 20080505, end: 20080511
  6. TRITACE [Concomitant]
  7. HERPLEX [Concomitant]
  8. SINERSUL [Concomitant]
  9. AMONEX [Concomitant]
  10. TEOLIN [Concomitant]

REACTIONS (2)
  - PYREXIA [None]
  - RENAL FAILURE ACUTE [None]
